FAERS Safety Report 23499171 (Version 2)
Quarter: 2024Q1

REPORT INFORMATION
  Report Type: Spontaneous
  Country: US (occurrence: US)
  Receive Date: 20240208
  Receipt Date: 20240208
  Transmission Date: 20240409
  Serious: No
  Sender: FDA-Public Use
  Company Number: US-ABBVIE-5619117

PATIENT
  Age: 60 Year
  Sex: Female

DRUGS (2)
  1. HUMIRA [Suspect]
     Active Substance: ADALIMUMAB
     Indication: Sarcoidosis
     Dosage: FORM STRENGTH- 40 MG
     Route: 058
  2. HUMIRA [Suspect]
     Active Substance: ADALIMUMAB
     Indication: Loefgren syndrome

REACTIONS (9)
  - Off label use [Unknown]
  - Injection site reaction [Unknown]
  - Incorrect dose administered [Not Recovered/Not Resolved]
  - Injection site haemorrhage [Unknown]
  - COVID-19 [Unknown]
  - Allergy to chemicals [Unknown]
  - Device issue [Not Recovered/Not Resolved]
  - Symptom recurrence [Unknown]
  - Autoimmune disorder [Unknown]

NARRATIVE: CASE EVENT DATE: 20230901
